FAERS Safety Report 5207141-X (Version None)
Quarter: 2007Q1

REPORT INFORMATION
  Report Type: 
  Country: None (occurrence: None)
  Receive Date: 20070110
  Receipt Date: 20070104
  Transmission Date: 20070707
  Serious: Yes (Death, Other)
  Sender: FDA-Public Use
  Company Number: 163-21880-07010141

PATIENT
  Age: 85 Year
  Sex: Female
  Weight: 74.5 kg

DRUGS (2)
  1. REVLIMID [Suspect]
     Indication: ACUTE MYELOID LEUKAEMIA
     Dosage: 50 MG, DAILY FOR MAX OF 28 DAYS, ORAL
     Route: 048
     Dates: start: 20061005, end: 20061030
  2. HYDROXYUREA [Concomitant]

REACTIONS (3)
  - BONE MARROW FAILURE [None]
  - DISEASE PROGRESSION [None]
  - HYPOCALCAEMIA [None]
